FAERS Safety Report 14121165 (Version 5)
Quarter: 2017Q4

REPORT INFORMATION
  Report Type: Spontaneous
  Country: HU (occurrence: HU)
  Receive Date: 20171024
  Receipt Date: 20171221
  Transmission Date: 20180321
  Serious: Yes (Life-Threatening, Hospitalization, Other)
  Sender: FDA-Public Use
  Company Number: HU-PFIZER INC-2017458433

PATIENT
  Age: 35 Year
  Sex: Female

DRUGS (13)
  1. CILOSTAZOL. [Concomitant]
     Active Substance: CILOSTAZOL
     Dosage: UNK
  2. ZINC CHLORIDE [Concomitant]
     Active Substance: ZINC CHLORIDE
     Indication: ASTRINGENT THERAPY
     Dosage: UNK
  3. LOW MOLECULAR WEIGHT HEPARIN SODIUM [Concomitant]
     Active Substance: HEPARIN SODIUM
     Dosage: UNK
  4. CATAFLAM /00372302/ [Suspect]
     Active Substance: DICLOFENAC POTASSIUM
     Indication: PAIN
     Dosage: UNK UNK, AS NEEDED (CATAFLAM V)
  5. ALPRESTIL [Concomitant]
     Dosage: 20 UG, DAILY (INFUSION)
  6. AUGMENTIN [Suspect]
     Active Substance: AMOXICILLIN\CLAVULANATE POTASSIUM
     Indication: ANTIBIOTIC THERAPY
     Dosage: UNK, 2X/DAY (2 X 1 TABLETS OF AUGMENTIN DUO DAILY)
  7. AUGMENTIN [Suspect]
     Active Substance: AMOXICILLIN\CLAVULANATE POTASSIUM
     Indication: PROPHYLAXIS
     Dosage: 2 G, UNK (ONE HOUR BEFORE SURGERY)
     Route: 065
  8. PANTOPRAZOLE [Suspect]
     Active Substance: PANTOPRAZOLE
     Dosage: 20 MG, 2X/DAY (BID)
     Route: 065
  9. ACENOCOUMAROL [Concomitant]
     Active Substance: ACENOCOUMAROL
     Dosage: UNK
  10. DALACIN C /00166001/ [Concomitant]
     Dosage: 300 MG, 3X/DAY (3 X 300 MG CLINDAMYCIN)
  11. CHLORHEXIDINE [Concomitant]
     Active Substance: CHLORHEXIDINE
     Dosage: UNK (ORAL RINSE)
     Route: 048
  12. BISOPROLOL FUMARATE. [Concomitant]
     Active Substance: BISOPROLOL FUMARATE
     Dosage: UNK
  13. ACETYLSALICYLIC ACID [Concomitant]
     Active Substance: ASPIRIN
     Dosage: 100 MG, DAILY

REACTIONS (20)
  - Muscular weakness [Unknown]
  - Acute leukaemia [Unknown]
  - Pyogenic granuloma [Unknown]
  - Sinusitis [Unknown]
  - Pain [Unknown]
  - Gingival swelling [Unknown]
  - Nasal congestion [Unknown]
  - Headache [Unknown]
  - Granulomatosis with polyangiitis [Recovering/Resolving]
  - Lymphadenopathy [Unknown]
  - Pyrexia [Unknown]
  - Ear infection [Unknown]
  - Pneumonia [Unknown]
  - Condition aggravated [Recovering/Resolving]
  - Infectious mononucleosis [Recovering/Resolving]
  - Parotid gland enlargement [Unknown]
  - Paraesthesia [Unknown]
  - Pain in extremity [Unknown]
  - Purulent discharge [Unknown]
  - Insomnia [Unknown]
